FAERS Safety Report 6574916-4 (Version None)
Quarter: 2010Q1

REPORT INFORMATION
  Report Type: 
  Country: None (occurrence: None)
  Receive Date: 20100209
  Receipt Date: 20100201
  Transmission Date: 20100710
  Serious: Yes (Other)
  Sender: FDA-Public Use
  Company Number: US-ABBOTT-09P-163-0599829-00

PATIENT
  Sex: Male
  Weight: 88.53 kg

DRUGS (1)
  1. NIASPAN [Suspect]
     Indication: HIGH DENSITY LIPOPROTEIN DECREASED
     Route: 065
     Dates: start: 20080101, end: 20090101

REACTIONS (2)
  - MACULAR DEGENERATION [None]
  - MYELODYSPLASTIC SYNDROME [None]
